FAERS Safety Report 6240628-X (Version None)
Quarter: 2009Q2

REPORT INFORMATION
  Report Type: 
  Country: None (occurrence: None)
  Receive Date: 20090623
  Receipt Date: 20081112
  Transmission Date: 20091009
  Serious: No
  Sender: FDA-Public Use
  Company Number: US-ASTRAZENECA-2008UW25337

PATIENT
  Age: 67 Year
  Sex: Female
  Weight: 77.1 kg

DRUGS (20)
  1. PULMICORT RESPULES [Suspect]
     Indication: ASTHMA
     Dosage: 1.5 MG/2 ML
     Route: 055
  2. PULMICORT RESPULES [Suspect]
     Indication: BRONCHIAL DISORDER
     Dosage: 1.5 MG/2 ML
     Route: 055
  3. ATROVENT [Concomitant]
  4. ALBUTEROL [Concomitant]
  5. PROTONIX [Concomitant]
  6. VITAMIN E [Concomitant]
  7. VITAMIN D [Concomitant]
  8. CALCIUM [Concomitant]
  9. MILK THISTLE [Concomitant]
  10. OXYCODONE HCL [Concomitant]
  11. ATIVAN [Concomitant]
  12. MUCINEX [Concomitant]
  13. VYTORIN [Concomitant]
  14. GARLIC [Concomitant]
  15. BIOKULT [Concomitant]
  16. ROBAXIN [Concomitant]
  17. BIOFLEX [Concomitant]
  18. COUGH MEDICATION [Concomitant]
  19. TRAZODONE HCL [Concomitant]
  20. ASPIRIN [Concomitant]

REACTIONS (1)
  - ABDOMINAL DISCOMFORT [None]
